FAERS Safety Report 15627845 (Version 3)
Quarter: 2019Q4

REPORT INFORMATION
  Report Type: Spontaneous
  Country: JP (occurrence: JP)
  Receive Date: 20181116
  Receipt Date: 20191226
  Transmission Date: 20200122
  Serious: Yes (Disabling, Other)
  Sender: FDA-Public Use
  Company Number: JP-BAYER-2018-207317

PATIENT
  Age: 72 Year
  Sex: Male
  Weight: 78.2 kg

DRUGS (12)
  1. STIVARGA [Suspect]
     Active Substance: REGORAFENIB
     Indication: HEPATOCELLULAR CARCINOMA
     Dosage: 120 MG, QD
     Route: 048
     Dates: start: 20170711, end: 20170724
  2. FUROSEMIDE. [Concomitant]
     Active Substance: FUROSEMIDE
     Dosage: DAILY DOSE 40 MG
     Route: 048
     Dates: start: 20180206
  3. NEXAVAR [Suspect]
     Active Substance: SORAFENIB
     Indication: HEPATOCELLULAR CARCINOMA
     Dosage: DAILY DOSE 800 MG
     Route: 048
     Dates: start: 20161206, end: 20170710
  4. STIVARGA [Suspect]
     Active Substance: REGORAFENIB
     Indication: METASTASES TO LUNG
     Dosage: 160 MG, QD
     Route: 048
     Dates: start: 20170725, end: 20180326
  5. NEXIUM [Concomitant]
     Active Substance: ESOMEPRAZOLE MAGNESIUM
     Dosage: DAILY DOSE 20 MG
     Route: 048
     Dates: start: 20160328
  6. NATEGLINIDE. [Concomitant]
     Active Substance: NATEGLINIDE
     Dosage: DAILY DOSE 180 MG
     Route: 048
     Dates: start: 20170213
  7. HEPAACT [Concomitant]
     Dosage: DAILY DOSE 13.5 G
     Route: 048
     Dates: start: 20170217
  8. STIVARGA [Suspect]
     Active Substance: REGORAFENIB
     Indication: HEPATOCELLULAR CARCINOMA
     Dosage: 160 MG, QD
     Route: 048
     Dates: start: 20180410, end: 20180814
  9. MENATETRENONE [Concomitant]
     Active Substance: MENATETRENONE
     Dosage: DAILY DOSE 45 MG
     Route: 048
     Dates: start: 20170213
  10. SHAKUYAKUKANZOTO [Concomitant]
     Active Substance: HERBALS
     Dosage: DAILY DOSE 7.5 G
     Route: 048
     Dates: start: 20171205
  11. EPERISONE HYDROCHLORIDE [Concomitant]
     Active Substance: EPERISONE HYDROCHLORIDE
     Dosage: DAILY DOSE 150 MG
     Route: 048
     Dates: start: 20180306, end: 20180716
  12. FEBURIC [Concomitant]
     Active Substance: FEBUXOSTAT
     Dosage: DAILY DOSE 20 MG
     Route: 048
     Dates: start: 20170704

REACTIONS (6)
  - Proteinuria [Recovering/Resolving]
  - Protein urine present [None]
  - Aplasia pure red cell [Recovered/Resolved]
  - Bone marrow failure [None]
  - Hypoproteinaemia [None]
  - Anaemia [Recovering/Resolving]

NARRATIVE: CASE EVENT DATE: 20170213
